FAERS Safety Report 5463675-4 (Version None)
Quarter: 2007Q3

REPORT INFORMATION
  Report Type: 
  Country: None (occurrence: None)
  Receive Date: 20070919
  Receipt Date: 20070904
  Transmission Date: 20080115
  Serious: Yes (Hospitalization)
  Sender: FDA-Public Use
  Company Number: 237428K07USA

PATIENT
  Age: 28 Year
  Sex: Female

DRUGS (3)
  1. REBIF [Suspect]
     Indication: MULTIPLE SCLEROSIS
     Dosage: 44 MCG, 3 IN 1 WEEKS, SUBCUTANEOUS
     Route: 058
     Dates: start: 20060119
  2. BIRTH CONTROL PILL (ORAL CONTRACEPTIVE NOS) [Suspect]
     Dates: end: 20070301
  3. PROVIGIL [Concomitant]

REACTIONS (1)
  - PULMONARY EMBOLISM [None]
